FAERS Safety Report 7092962-1 (Version None)
Quarter: 2010Q4

REPORT INFORMATION
  Report Type: 
  Country: None (occurrence: None)
  Receive Date: 20101110
  Receipt Date: 20101104
  Transmission Date: 20110411
  Serious: Yes (Other)
  Sender: FDA-Public Use
  Company Number: GB-EISAI INC.-E2020-07908-SPO-GB

PATIENT
  Age: 81 Year
  Sex: Female

DRUGS (2)
  1. ARICEPT [Suspect]
     Dosage: UNKNOWN
     Route: 048
     Dates: end: 20100101
  2. ARICEPT [Suspect]
     Route: 048
     Dates: start: 20100101, end: 20100101

REACTIONS (1)
  - STEVENS-JOHNSON SYNDROME [None]
